FAERS Safety Report 6462597-X (Version None)
Quarter: 2009Q4

REPORT INFORMATION
  Report Type: 
  Country: None (occurrence: None)
  Receive Date: 20091130
  Receipt Date: 20091118
  Transmission Date: 20100525
  Serious: Yes (Other)
  Sender: FDA-Public Use
  Company Number: JP-PFIZER INC-2009301050

PATIENT
  Age: 30 Year
  Sex: Male

DRUGS (6)
  1. ZYVOX [Suspect]
     Indication: BACTERIAL DISEASE CARRIER
     Dosage: 1200 MG, 1X/DAY
     Route: 042
     Dates: start: 20091110, end: 20091101
  2. DEPAKENE [Concomitant]
     Route: 048
  3. MYSTAN [Concomitant]
     Route: 048
  4. SSRI [Concomitant]
     Route: 048
  5. TARGOCID [Concomitant]
     Indication: TENDONITIS
     Route: 042
  6. BAKTAR [Concomitant]
     Indication: TENDONITIS

REACTIONS (1)
  - HALLUCINATION [None]
